FAERS Safety Report 8877711 (Version 3)
Quarter: 2014Q2

REPORT INFORMATION
  Report Type: Spontaneous
  Country: US (occurrence: US)
  Receive Date: 20121024
  Receipt Date: 20131018
  Transmission Date: 20141212
  Serious: Yes (Other)
  Sender: FDA-Public Use
  Company Number: US-PFIZER INC-2012264170

PATIENT
  Sex: 0

DRUGS (3)
  1. PHENYTOIN [Suspect]
     Indication: GENERALISED TONIC-CLONIC SEIZURE
     Dosage: UNK
  2. DILANTIN [Suspect]
     Indication: GENERALISED TONIC-CLONIC SEIZURE
     Dosage: 300 MG, UNK
     Dates: start: 1982
  3. PHENOBARBITAL [Suspect]
     Indication: GENERALISED TONIC-CLONIC SEIZURE
     Dosage: 120 MG, UNK
     Dates: start: 1982

REACTIONS (3)
  - Homicidal ideation [Unknown]
  - Suicidal ideation [Unknown]
  - Abnormal behaviour [Unknown]
